FAERS Safety Report 24789724 (Version 1)
Quarter: 2024Q4

REPORT INFORMATION
  Report Type: Spontaneous
  Country: US (occurrence: None)
  Receive Date: 20241229
  Receipt Date: 20241229
  Transmission Date: 20250114
  Serious: Yes (Other)
  Sender: Public
  Company Number: None

PATIENT
  Age: 47 Year
  Sex: Male
  Weight: 92.25 kg

DRUGS (1)
  1. SEMAGLUTIDE [Suspect]
     Active Substance: SEMAGLUTIDE
     Indication: Weight decreased
     Dosage: OTHER FREQUENCY : WEEKLY;?
     Route: 030

REACTIONS (1)
  - Lupus-like syndrome [None]

NARRATIVE: CASE EVENT DATE: 20241227
